FAERS Safety Report 6282350-X (Version None)
Quarter: 2009Q3

REPORT INFORMATION
  Report Type: 
  Country: None (occurrence: None)
  Receive Date: 20090724
  Receipt Date: 20090709
  Transmission Date: 20100115
  Serious: Yes (Hospitalization)
  Sender: FDA-Public Use
  Company Number: JP-JNJFOC-20090705405

PATIENT
  Sex: Female

DRUGS (7)
  1. FINIBAX [Suspect]
     Indication: PNEUMONIA BACTERIAL
     Dosage: 0.5 G X2
     Route: 041
     Dates: start: 20090424, end: 20090508
  2. VANCOMYCIN [Suspect]
     Route: 041
  3. VANCOMYCIN [Suspect]
     Route: 041
  4. VANCOMYCIN [Suspect]
     Route: 041
  5. VANCOMYCIN [Suspect]
     Indication: PNEUMONIA STAPHYLOCOCCAL
     Route: 041
  6. LASIX [Concomitant]
     Indication: MYOCARDIAL INFARCTION
     Route: 042
  7. AMIGRAND [Concomitant]
     Indication: MYOCARDIAL INFARCTION
     Route: 042

REACTIONS (1)
  - TUBULOINTERSTITIAL NEPHRITIS [None]
